FAERS Safety Report 23148862 (Version 1)
Quarter: 2023Q4

REPORT INFORMATION
  Report Type: Spontaneous
  Country: US (occurrence: US)
  Receive Date: 20231106
  Receipt Date: 20231106
  Transmission Date: 20240109
  Serious: No
  Sender: FDA-Public Use
  Company Number: US-AMGEN-USASP2023195784

PATIENT
  Age: 61 Year
  Sex: Female

DRUGS (2)
  1. CORLANOR [Suspect]
     Active Substance: IVABRADINE HYDROCHLORIDE
     Indication: Heart rate increased
     Dosage: UNK 7.5MG IN AM AND 5MG IN PM
     Route: 048
     Dates: start: 2016
  2. CORLANOR [Suspect]
     Active Substance: IVABRADINE HYDROCHLORIDE
     Indication: Off label use
     Dosage: 7.5 MILLIGRAM, BID
     Route: 048
     Dates: start: 2023

REACTIONS (4)
  - Heart rate increased [Unknown]
  - Fatigue [Unknown]
  - Drug ineffective for unapproved indication [Unknown]
  - Off label use [Unknown]

NARRATIVE: CASE EVENT DATE: 20160101
